FAERS Safety Report 6428171-6 (Version None)
Quarter: 2009Q4

REPORT INFORMATION
  Report Type: 
  Country: None (occurrence: None)
  Receive Date: 20091105
  Receipt Date: 20091005
  Transmission Date: 20100525
  Serious: No
  Sender: FDA-Public Use
  Company Number: US-BAYER-200935726NA

PATIENT
  Age: 68 Year
  Sex: Female
  Weight: 62 kg

DRUGS (1)
  1. CLIMARA PRO [Suspect]
     Indication: OSTEOPOROSIS
     Dosage: 0.045/0.015MG
     Route: 062
     Dates: start: 20090925

REACTIONS (2)
  - ABDOMINAL DISTENSION [None]
  - NAUSEA [None]
